FAERS Safety Report 7244580-X (Version None)
Quarter: 2011Q1

REPORT INFORMATION
  Report Type: 
  Country: None (occurrence: None)
  Receive Date: 20110125
  Receipt Date: 20110124
  Transmission Date: 20110831
  Serious: Yes (Hospitalization, Other)
  Sender: FDA-Public Use
  Company Number: US-ABBOTT-10P-163-0683827-00

PATIENT
  Sex: Female
  Weight: 114.41 kg

DRUGS (13)
  1. HUMIRA [Suspect]
     Indication: PSORIATIC ARTHROPATHY
     Dates: start: 20030101, end: 20070101
  2. HUMIRA [Suspect]
     Dates: start: 20080101, end: 20101001
  3. HUMIRA [Suspect]
     Dates: start: 20110124
  4. CALCIUM WITH VITAMIN D [Concomitant]
     Indication: MINERAL SUPPLEMENTATION
  5. ESTRACE [Concomitant]
     Indication: HORMONE REPLACEMENT THERAPY
  6. FLU VACCINE [Suspect]
     Indication: PROPHYLAXIS
     Dates: start: 20101001, end: 20101001
  7. METHOTREXATE [Concomitant]
     Indication: PSORIATIC ARTHROPATHY
  8. LISINOPRIL WITH HYDROCHLORATHIAZIDE [Concomitant]
     Indication: HYPERTENSION
  9. PRILOSEC [Concomitant]
     Indication: HIATUS HERNIA
  10. FOLIC ACID [Concomitant]
     Indication: VITAMIN SUPPLEMENTATION
  11. SYNTHROID [Concomitant]
     Indication: HYPOTHYROIDISM
  12. PREDNISONE [Concomitant]
     Indication: PSORIATIC ARTHROPATHY
  13. MEDROL [Concomitant]
     Indication: PRODUCT USED FOR UNKNOWN INDICATION
     Dates: start: 20101001, end: 20101001

REACTIONS (10)
  - ROAD TRAFFIC ACCIDENT [None]
  - INTERVERTEBRAL DISC PROTRUSION [None]
  - LOSS OF CONSCIOUSNESS [None]
  - BRADYCARDIA [None]
  - INFLUENZA LIKE ILLNESS [None]
  - URINARY TRACT INFECTION [None]
  - GASTROENTERITIS NOROVIRUS [None]
  - CONTUSION [None]
  - PSEUDOMONAS INFECTION [None]
  - MYALGIA [None]
